FAERS Safety Report 22518596 (Version 1)
Quarter: 2023Q2

REPORT INFORMATION
  Report Type: Spontaneous
  Country: GB (occurrence: GB)
  Receive Date: 20230605
  Receipt Date: 20230605
  Transmission Date: 20230721
  Serious: Yes (Hospitalization)
  Sender: FDA-Public Use
  Company Number: None

PATIENT
  Age: 38 Year
  Sex: Female

DRUGS (6)
  1. OLANZAPINE [Suspect]
     Active Substance: OLANZAPINE
     Indication: Schizophrenia
     Dosage: UNK  UNK
     Route: 065
  2. CLOZARIL [Suspect]
     Active Substance: CLOZAPINE
     Indication: Schizophrenia
     Dosage: UNK  UNK
     Route: 048
     Dates: start: 20210408, end: 20230220
  3. CLOZARIL [Suspect]
     Active Substance: CLOZAPINE
     Dosage: UNK  UNK
     Route: 048
     Dates: start: 20230417, end: 202305
  4. CLOZARIL [Suspect]
     Active Substance: CLOZAPINE
     Dosage: UNK  UNK
     Route: 048
     Dates: start: 20230417, end: 20230508
  5. LAMOTRIGINE [Concomitant]
     Active Substance: LAMOTRIGINE
     Indication: Epilepsy
     Dosage: 175 MG, 2 TIMES PER DAY
     Route: 065
     Dates: start: 200601
  6. LAMOTRIGINE [Concomitant]
     Active Substance: LAMOTRIGINE
     Dosage: 50 MG, 2 TIMES PER DAY
     Route: 065

REACTIONS (1)
  - Lower respiratory tract infection [Unknown]
